FAERS Safety Report 5019404-1 (Version None)
Quarter: 2006Q2

REPORT INFORMATION
  Report Type: 
  Country: None (occurrence: None)
  Receive Date: 20060530
  Receipt Date: 20060512
  Transmission Date: 20061013
  Serious: Yes (Hospitalization)
  Sender: FDA-Public Use
  Company Number: 200612610BWH

PATIENT
  Age: 81 Year
  Sex: Male
  Weight: 69.3096 kg

DRUGS (17)
  1. NEXAVAR [Suspect]
     Indication: METASTATIC RENAL CELL CARCINOMA
     Dosage: 400 MG, BID, ORAL
     Route: 048
     Dates: start: 20060303, end: 20060406
  2. TENORMIN [Concomitant]
  3. FLOMAX [Concomitant]
  4. ADULT CHEWABLE ASPIRIN [Concomitant]
  5. LOTENSIN [Concomitant]
  6. NORVASC [Concomitant]
  7. CALCIUM GLUCONATE [Concomitant]
  8. MAG-OX [Concomitant]
  9. HYDROCHLOROTHIAZIDE [Concomitant]
  10. SENIOR VITAMIN [Concomitant]
  11. ASCORBIC ACID [Concomitant]
  12. COD LIVER OIL [Concomitant]
  13. JUVENON [Concomitant]
  14. IMODIUM [Concomitant]
  15. ALEVE (CAPLET) [Concomitant]
  16. MOTRIN [Concomitant]
  17. AGGRENOX [Concomitant]

REACTIONS (24)
  - ASTHENIA [None]
  - ATROPHY [None]
  - BLOOD CREATININE INCREASED [None]
  - BLOOD GLUCOSE INCREASED [None]
  - BLOOD SODIUM DECREASED [None]
  - BLOOD TESTOSTERONE DECREASED [None]
  - BLOOD TESTOSTERONE FREE ABNORMAL [None]
  - CALCIUM IONISED DECREASED [None]
  - COMPUTERISED TOMOGRAM ABNORMAL [None]
  - DIARRHOEA [None]
  - DIZZINESS [None]
  - DYSARTHRIA [None]
  - DYSGEUSIA [None]
  - FLUSHING [None]
  - HAEMATOCRIT DECREASED [None]
  - HAEMOGLOBIN DECREASED [None]
  - HEMIPARESIS [None]
  - HYPOCALCAEMIA [None]
  - HYPOGLYCAEMIA [None]
  - HYPOMAGNESAEMIA [None]
  - LEUKOARAIOSIS [None]
  - MUSCULAR WEAKNESS [None]
  - SINUS DISORDER [None]
  - TRANSIENT ISCHAEMIC ATTACK [None]
